FAERS Safety Report 13624914 (Version 2)
Quarter: 2017Q2

REPORT INFORMATION
  Report Type: Spontaneous
  Country: US (occurrence: US)
  Receive Date: 20170608
  Receipt Date: 20170620
  Transmission Date: 20170830
  Serious: Yes (Hospitalization, Other)
  Sender: FDA-Public Use
  Company Number: US-ROCHE-1941123

PATIENT
  Age: 34 Year
  Sex: Female

DRUGS (4)
  1. LIDOCAINE. [Suspect]
     Active Substance: LIDOCAINE
     Indication: FIBROMYALGIA
  2. COPAXONE [Suspect]
     Active Substance: GLATIRAMER ACETATE
     Indication: MULTIPLE SCLEROSIS
     Route: 058
     Dates: start: 20150804
  3. VALIUM [Suspect]
     Active Substance: DIAZEPAM
     Indication: PRODUCT USED FOR UNKNOWN INDICATION
     Route: 065
  4. LIDOCAINE. [Suspect]
     Active Substance: LIDOCAINE
     Indication: MULTIPLE SCLEROSIS
     Route: 065

REACTIONS (10)
  - Atrial fibrillation [Unknown]
  - Dyspnoea [Not Recovered/Not Resolved]
  - Cardiac failure congestive [Unknown]
  - Pneumonia [Unknown]
  - Chest pain [Recovered/Resolved]
  - Asthenia [Unknown]
  - Oxygen saturation decreased [Unknown]
  - Ejection fraction decreased [Unknown]
  - Seizure [Unknown]
  - Vision blurred [Unknown]

NARRATIVE: CASE EVENT DATE: 20170215
